FAERS Safety Report 7911405-6 (Version None)
Quarter: 2011Q4

REPORT INFORMATION
  Report Type: 
  Country: None (occurrence: None)
  Receive Date: 20111114
  Receipt Date: 20111101
  Transmission Date: 20120403
  Serious: Yes (Hospitalization, Other)
  Sender: FDA-Public Use
  Company Number: JP-ASTELLAS-2011US002577

PATIENT
  Age: 49 Year
  Sex: Female

DRUGS (2)
  1. MINOCYCLINE HCL [Concomitant]
     Indication: PRODUCT USED FOR UNKNOWN INDICATION
     Dosage: UNK
     Route: 048
  2. TARCEVA [Suspect]
     Indication: LUNG NEOPLASM MALIGNANT
     Dosage: 150 MG, UID/QD
     Route: 048

REACTIONS (7)
  - DERMATITIS ACNEIFORM [None]
  - RASH GENERALISED [None]
  - PARONYCHIA [None]
  - DYSGEUSIA [None]
  - ORAL PAIN [None]
  - HENOCH-SCHONLEIN PURPURA [None]
  - LIVER DISORDER [None]
